FAERS Safety Report 6648095-9 (Version None)
Quarter: 2010Q1

REPORT INFORMATION
  Report Type: 
  Country: None (occurrence: None)
  Receive Date: 20100324
  Receipt Date: 20100321
  Transmission Date: 20100710
  Serious: Yes (Death, Hospitalization)
  Sender: FDA-Public Use
  Company Number: PHHY2010IL17427

PATIENT
  Age: 86 Year
  Sex: Male

DRUGS (1)
  1. SANDOSTATIN LAR [Suspect]
     Indication: GASTROINTESTINAL CARCINOMA
     Dosage: 40 MG EVERY 28 DAYS
     Dates: start: 20090507

REACTIONS (3)
  - DEATH [None]
  - PULMONARY OEDEMA [None]
  - RENAL FAILURE [None]
